FAERS Safety Report 12047838 (Version 1)
Quarter: 2016Q1

REPORT INFORMATION
  Report Type: Spontaneous
  Country: GB (occurrence: GB)
  Receive Date: 20160208
  Receipt Date: 20160208
  Transmission Date: 20160526
  Serious: Yes (Other)
  Sender: FDA-Public Use
  Company Number: GB-TEVA-633267ISR

PATIENT
  Age: 74 Year
  Sex: Male

DRUGS (6)
  1. BENSERAZIDE [Concomitant]
     Active Substance: BENSERAZIDE
     Indication: PARKINSON^S DISEASE
     Dosage: STARTED THREE YEARS BEFORE PRESENTATION
     Route: 065
  2. PERGOLIDE [Suspect]
     Active Substance: PERGOLIDE
     Indication: PARKINSON^S DISEASE
     Dosage: 2 MILLIGRAM DAILY; 2 MG/DAY (MAINTENANCE DOSE); STARTED THREE YEARS BEFORE PRESENTATION
     Route: 065
  3. TIMOLOL. [Concomitant]
     Active Substance: TIMOLOL
     Indication: INTRAOCULAR PRESSURE TEST
     Dosage: 0.5% IN THE LEFT EYE
     Route: 047
  4. LEVODOPA [Concomitant]
     Active Substance: LEVODOPA
     Indication: PARKINSON^S DISEASE
     Dosage: STARTED THREE YEARS BEFORE PRESENTATION
     Route: 065
  5. PILOCARPINE. [Concomitant]
     Active Substance: PILOCARPINE
     Indication: INTRAOCULAR PRESSURE TEST
     Dosage: 2% IN THE LEFT EYE
     Route: 047
  6. CARBIDOPA. [Concomitant]
     Active Substance: CARBIDOPA
     Indication: PARKINSON^S DISEASE
     Dosage: STARTED THREE YEARS BEFORE PRESENTATION
     Route: 065

REACTIONS (2)
  - Choroidal effusion [Recovered/Resolved]
  - Hypotony of eye [Recovered/Resolved]
